FAERS Safety Report 15766307 (Version 1)
Quarter: 2018Q4

REPORT INFORMATION
  Report Type: Spontaneous
  Country: US (occurrence: US)
  Receive Date: 20181227
  Receipt Date: 20181227
  Transmission Date: 20190205
  Serious: No
  Sender: FDA-Public Use
  Company Number: US-PFIZER INC-2018529131

PATIENT
  Age: 17 Year
  Sex: Male

DRUGS (1)
  1. GENOTROPIN [Suspect]
     Active Substance: SOMATROPIN
     Dosage: 4.8 MG, DAILY
     Dates: start: 20120914

REACTIONS (5)
  - Blood alkaline phosphatase increased [Unknown]
  - Globulins decreased [Unknown]
  - Insulin-like growth factor increased [Unknown]
  - Blood bilirubin increased [Unknown]
  - Protein total decreased [Unknown]

NARRATIVE: CASE EVENT DATE: 20180201
